FAERS Safety Report 22306670 (Version 1)
Quarter: 2023Q2

REPORT INFORMATION
  Report Type: Spontaneous
  Country: ES (occurrence: ES)
  Receive Date: 20230511
  Receipt Date: 20230511
  Transmission Date: 20230722
  Serious: Yes (Hospitalization, Other)
  Sender: FDA-Public Use
  Company Number: None

PATIENT
  Age: 79 Year
  Sex: Male

DRUGS (2)
  1. OPDIVO [Suspect]
     Active Substance: NIVOLUMAB
     Indication: Choroid melanoma
     Route: 042
     Dates: start: 20230206, end: 20230206
  2. YERVOY [Suspect]
     Active Substance: IPILIMUMAB
     Indication: Choroid melanoma
     Dosage: 255 MG
     Route: 042
     Dates: start: 20230206, end: 20230206

REACTIONS (3)
  - Myocarditis [Recovered/Resolved]
  - Myositis [Recovered/Resolved]
  - Hepatocellular injury [Recovered/Resolved]

NARRATIVE: CASE EVENT DATE: 20230227
